FAERS Safety Report 6047264-9 (Version None)
Quarter: 2009Q1

REPORT INFORMATION
  Report Type: 
  Country: None (occurrence: None)
  Receive Date: 20090121
  Receipt Date: 20071130
  Transmission Date: 20090719
  Serious: Yes (Other)
  Sender: FDA-Public Use
  Company Number: HQWYE961807AUG03

PATIENT
  Age: 59 Year
  Sex: Female
  Weight: 80.36 kg

DRUGS (1)
  1. PREMPRO [Suspect]
     Indication: HORMONE REPLACEMENT THERAPY
     Dosage: 0.625MG/UNSPECIFIED EVERY DAY, ORAL
     Route: 048
     Dates: start: 19910101, end: 20010401

REACTIONS (1)
  - BREAST CANCER [None]
